FAERS Safety Report 22180742 (Version 1)
Quarter: 2023Q2

REPORT INFORMATION
  Report Type: Spontaneous
  Country: US (occurrence: None)
  Receive Date: 20230405
  Receipt Date: 20230405
  Transmission Date: 20230722
  Serious: Yes (Hospitalization)
  Sender: FDA-Public Use
  Company Number: None

PATIENT
  Age: 70 Year
  Sex: Male
  Weight: 64 kg

DRUGS (5)
  1. DURVALUMAB [Suspect]
     Active Substance: DURVALUMAB
     Indication: Small cell lung cancer extensive stage
     Dosage: OTHER FREQUENCY : EVERY 28 DAYS;?
     Route: 040
     Dates: start: 20220919, end: 20230307
  2. ENTECAVIR [Concomitant]
     Active Substance: ENTECAVIR
     Dates: start: 20230207
  3. ISONIAZID [Concomitant]
     Active Substance: ISONIAZID
     Dates: start: 20230204
  4. PROCHLORPERAZINE [Concomitant]
     Active Substance: PROCHLORPERAZINE
     Dates: start: 20220919
  5. SIMVASTATIN [Concomitant]
     Active Substance: SIMVASTATIN
     Dates: start: 20230119

REACTIONS (9)
  - Hypertransaminasaemia [None]
  - Oropharyngeal pain [None]
  - Cough [None]
  - Fatigue [None]
  - Decreased appetite [None]
  - Anosmia [None]
  - Ageusia [None]
  - Back pain [None]
  - Latent tuberculosis [None]

NARRATIVE: CASE EVENT DATE: 20230404
